FAERS Safety Report 6449500-3 (Version None)
Quarter: 2009Q4

REPORT INFORMATION
  Report Type: 
  Country: None (occurrence: None)
  Receive Date: 20091120
  Receipt Date: 20091109
  Transmission Date: 20100525
  Serious: Yes (Other)
  Sender: FDA-Public Use
  Company Number: IE-ELI_LILLY_AND_COMPANY-IE200911002290

PATIENT
  Age: 55 Year
  Sex: Female

DRUGS (1)
  1. CYMBALTA [Suspect]
     Indication: DEPRESSION
     Dosage: 60 MG, UNKNOWN
     Route: 048
     Dates: start: 20080805, end: 20091019

REACTIONS (9)
  - AGGRESSION [None]
  - ANXIETY [None]
  - CRYING [None]
  - DIZZINESS [None]
  - INSOMNIA [None]
  - NIGHTMARE [None]
  - TINNITUS [None]
  - VISION BLURRED [None]
  - WITHDRAWAL SYNDROME [None]
